FAERS Safety Report 4326009-4 (Version None)
Quarter: 2004Q1

REPORT INFORMATION
  Report Type: 
  Country: None (occurrence: None)
  Receive Date: 20040324
  Receipt Date: 20040223
  Transmission Date: 20041129
  Serious: Yes (Death)
  Sender: FDA-Public Use
  Company Number: EWC040338469

PATIENT
  Age: 53 Year
  Sex: Male
  Weight: 80 kg

DRUGS (13)
  1. XIGRIS [Suspect]
     Indication: SEPSIS
     Dosage: 24 UG/KG/HR
     Dates: start: 20040222, end: 20040223
  2. PIPERACILLIN [Concomitant]
  3. AMIKACIN [Concomitant]
  4. MERONEM (MEROPENEM) [Concomitant]
  5. LINEZOLID [Concomitant]
  6. IMIPENEM [Concomitant]
  7. METROGYL (METRONIDAZOLE) [Concomitant]
  8. LEVOFLOXACIN [Concomitant]
  9. SOLU-MEDROL [Concomitant]
  10. THEOPHYLLINE [Concomitant]
  11. LASIX [Concomitant]
  12. PANTOPRAOZOLE [Concomitant]
  13. SUCRALFATE [Concomitant]

REACTIONS (9)
  - ACTIVATED PARTIAL THROMBOPLASTIN TIME PROLONGED [None]
  - BLOOD CREATININE DECREASED [None]
  - EPISTAXIS [None]
  - GASTROINTESTINAL HAEMORRHAGE [None]
  - INTERNATIONAL NORMALISED RATIO INCREASED [None]
  - MOUTH HAEMORRHAGE [None]
  - PLATELET COUNT DECREASED [None]
  - PROTHROMBIN TIME PROLONGED [None]
  - WHITE BLOOD CELL COUNT INCREASED [None]
